FAERS Safety Report 6698204-0 (Version None)
Quarter: 2010Q2

REPORT INFORMATION
  Report Type: 
  Country: None (occurrence: None)
  Receive Date: 20100427
  Receipt Date: 20100423
  Transmission Date: 20101027
  Serious: Yes (Other)
  Sender: FDA-Public Use
  Company Number: JP-SANOFI-AVENTIS-2010SA021050

PATIENT
  Age: 88 Year
  Sex: Male
  Weight: 58 kg

DRUGS (3)
  1. PLAVIX [Suspect]
     Indication: MYOCARDIAL INFARCTION
     Route: 048
     Dates: start: 20080703, end: 20100402
  2. PLAVIX [Suspect]
     Route: 048
     Dates: start: 20100413
  3. ASPIRIN [Suspect]
     Dates: start: 20080703, end: 20100402

REACTIONS (1)
  - LARGE INTESTINAL ULCER [None]
